FAERS Safety Report 22639811 (Version 1)
Quarter: 2023Q2

REPORT INFORMATION
  Report Type: Spontaneous
  Country: CA (occurrence: CA)
  Receive Date: 20230626
  Receipt Date: 20230626
  Transmission Date: 20230722
  Serious: Yes (Other)
  Sender: FDA-Public Use
  Company Number: CA-PFIZER INC-202300229462

PATIENT
  Age: 50 Year
  Sex: Female
  Weight: 81 kg

DRUGS (5)
  1. METHOTREXATE SODIUM [Suspect]
     Active Substance: METHOTREXATE SODIUM
     Indication: Rheumatoid arthritis
     Dosage: 15 MG, WEEKLY
     Dates: start: 2020
  2. PREDNISONE [Suspect]
     Active Substance: PREDNISONE
     Dosage: 5 MG, DAILY
     Dates: start: 1993
  3. NAPROXEN [Suspect]
     Active Substance: NAPROXEN
     Dosage: 500 MG, DAILY
     Dates: start: 1993
  4. FOLIC ACID [Concomitant]
     Active Substance: FOLIC ACID
     Dosage: UNK
     Dates: start: 2020
  5. PROLIA [Concomitant]
     Active Substance: DENOSUMAB
     Dosage: UNK

REACTIONS (2)
  - Arthropathy [Unknown]
  - Drug ineffective [Unknown]
